FAERS Safety Report 6471948-1 (Version None)
Quarter: 2009Q4

REPORT INFORMATION
  Report Type: 
  Country: None (occurrence: None)
  Receive Date: 20091203
  Receipt Date: 20080513
  Transmission Date: 20100525
  Serious: Yes (Hospitalization)
  Sender: FDA-Public Use
  Company Number: FR-ELI_LILLY_AND_COMPANY-FR200804004167

PATIENT
  Sex: Male

DRUGS (8)
  1. ZYPREXA [Suspect]
     Indication: PSYCHOTIC DISORDER
     Dosage: 10 MG, 2/D
     Route: 048
     Dates: end: 20080313
  2. DEPAMIDE [Concomitant]
     Dosage: 300 MG, 2/D
     Route: 048
  3. DEPAMIDE [Concomitant]
     Dosage: 300 MG, DAILY (1/D)
     Route: 048
     Dates: start: 20080313
  4. PARKINANE [Concomitant]
     Dates: end: 20080317
  5. AMIODARONE HCL [Concomitant]
  6. KARDEGIC [Concomitant]
  7. TRIATEC [Concomitant]
  8. SPECIAFOLDINE [Concomitant]

REACTIONS (4)
  - FALL [None]
  - ORTHOSTATIC HYPOTENSION [None]
  - PARKINSONISM [None]
  - UPPER LIMB FRACTURE [None]
